FAERS Safety Report 12353891 (Version 1)
Quarter: 2016Q2

REPORT INFORMATION
  Report Type: Spontaneous
  Country: US (occurrence: US)
  Receive Date: 20160511
  Receipt Date: 20160511
  Transmission Date: 20160815
  Serious: No
  Sender: FDA-Public Use
  Company Number: US-JNJFOC-20160425944

PATIENT
  Age: 48 Year
  Sex: Female
  Weight: 63.5 kg

DRUGS (4)
  1. TRI-LO-SPRINTEC [Suspect]
     Active Substance: ETHINYL ESTRADIOL\NORGESTIMATE
     Indication: PROPHYLAXIS
     Route: 065
     Dates: start: 20160424
  2. ORTHO TRI CYCLEN LO [Suspect]
     Active Substance: ETHINYL ESTRADIOL\NORGESTIMATE
     Indication: ENDOMETRIOSIS
     Route: 048
     Dates: end: 20160424
  3. ORTHO TRI CYCLEN LO [Suspect]
     Active Substance: ETHINYL ESTRADIOL\NORGESTIMATE
     Indication: MENSTRUAL CYCLE MANAGEMENT
     Route: 048
     Dates: end: 20160424
  4. TRI-LO-SPRINTEC [Suspect]
     Active Substance: ETHINYL ESTRADIOL\NORGESTIMATE
     Indication: ENDOMETRIOSIS
     Route: 065
     Dates: start: 20160424

REACTIONS (7)
  - Scar [Recovered/Resolved]
  - Off label use [Unknown]
  - Gastric disorder [Not Recovered/Not Resolved]
  - Product use issue [Unknown]
  - Diarrhoea [Not Recovered/Not Resolved]
  - Implant site extravasation [Recovered/Resolved]
  - Implant site reaction [Recovered/Resolved]

NARRATIVE: CASE EVENT DATE: 20160425
